FAERS Safety Report 13659218 (Version 1)
Quarter: 2017Q2

REPORT INFORMATION
  Report Type: Spontaneous
  Country: US (occurrence: US)
  Receive Date: 20170616
  Receipt Date: 20170616
  Transmission Date: 20170830
  Serious: Yes (Hospitalization)
  Sender: FDA-Public Use
  Company Number: None

PATIENT
  Age: 73 Year
  Sex: Male
  Weight: 100.9 kg

DRUGS (14)
  1. LEXAPRO [Concomitant]
     Active Substance: ESCITALOPRAM OXALATE
  2. GLIPIZIDE. [Concomitant]
     Active Substance: GLIPIZIDE
  3. XANAX [Concomitant]
     Active Substance: ALPRAZOLAM
  4. ECOTRIN [Concomitant]
     Active Substance: ASPIRIN
  5. CARDIZEM CD [Concomitant]
     Active Substance: DILTIAZEM HYDROCHLORIDE
  6. TIKOSYN [Suspect]
     Active Substance: DOFETILIDE
     Indication: CARDIAC FLUTTER
     Dosage: DATES OF USE - CHRONIC
     Route: 048
  7. TIKOSYN [Suspect]
     Active Substance: DOFETILIDE
     Indication: ATRIAL FIBRILLATION
     Dosage: DATES OF USE - CHRONIC
     Route: 048
  8. DIGOXIN. [Suspect]
     Active Substance: DIGOXIN
     Indication: ATRIAL FIBRILLATION
     Dosage: DATES OF USE - CHRONIC
     Route: 048
  9. DIGOXIN. [Suspect]
     Active Substance: DIGOXIN
     Indication: CARDIAC FLUTTER
     Dosage: DATES OF USE - CHRONIC
     Route: 048
  10. FLEXERIL [Concomitant]
     Active Substance: CYCLOBENZAPRINE HYDROCHLORIDE
  11. ARICEPT [Concomitant]
     Active Substance: DONEPEZIL HYDROCHLORIDE
  12. ZYRTEC [Concomitant]
     Active Substance: CETIRIZINE HYDROCHLORIDE
  13. ARICEPT [Concomitant]
     Active Substance: DONEPEZIL HYDROCHLORIDE
  14. ADVAIR HFA [Concomitant]
     Active Substance: FLUTICASONE PROPIONATE\SALMETEROL XINAFOATE

REACTIONS (4)
  - Acute kidney injury [None]
  - Toxicity to various agents [None]
  - Hyperkalaemia [None]
  - Cardiac arrest [None]

NARRATIVE: CASE EVENT DATE: 20150726
